FAERS Safety Report 7689514-9 (Version None)
Quarter: 2011Q3

REPORT INFORMATION
  Report Type: 
  Country: None (occurrence: None)
  Receive Date: 20110817
  Receipt Date: 20110711
  Transmission Date: 20111222
  Serious: Yes (Other)
  Sender: FDA-Public Use
  Company Number: US-TYCO HEALTHCARE/MALLINCKRODT-T201101394

PATIENT
  Sex: Female
  Weight: 65.76 kg

DRUGS (7)
  1. FENTANYL-100 [Suspect]
     Dosage: 50 UG/HR, 1 PATCH Q 72 HOURS
     Route: 062
     Dates: start: 20110601, end: 20110701
  2. IBUPROFEN [Concomitant]
     Indication: BREAKTHROUGH PAIN
     Dosage: UNK, PRN
  3. PRILOSEC [Concomitant]
     Indication: GASTROOESOPHAGEAL REFLUX DISEASE
  4. ZANTAC                             /00550802/ [Concomitant]
     Indication: SEASONAL ALLERGY
  5. HYDROCHLOROTHIAZIDE [Concomitant]
     Indication: BLOOD PRESSURE INCREASED
  6. FENTANYL-100 [Suspect]
     Indication: FIBROMYALGIA
     Dosage: 50 UG/HR, 1 PATCH Q 72 HOURS
     Route: 062
     Dates: start: 20110702
  7. FENTANYL [Concomitant]
     Dosage: 50 UG/HR, ONE PATCH Q 72 HOURS
     Route: 062
     Dates: start: 20080101, end: 20110501

REACTIONS (2)
  - WITHDRAWAL SYNDROME [None]
  - DRUG EFFECT DECREASED [None]
